FAERS Safety Report 18209330 (Version 6)
Quarter: 2020Q4

REPORT INFORMATION
  Report Type: Report from Study
  Country: FR (occurrence: FR)
  Receive Date: 20200828
  Receipt Date: 20201119
  Transmission Date: 20210113
  Serious: Yes (Life-Threatening)
  Sender: FDA-Public Use
  Company Number: FR-PFIZER INC-2020328105

PATIENT
  Sex: Male
  Weight: 34 kg

DRUGS (8)
  1. CIPROFLOXACINE [CIPROFLOXACIN HYDROCHLORIDE] [Concomitant]
     Active Substance: CIPROFLOXACIN HYDROCHLORIDE
     Indication: FEBRILE NEUTROPENIA
     Dosage: 7.5 MG/KG, 1X/DAY
     Dates: start: 20200804, end: 20200807
  2. CYTARABINE. [Suspect]
     Active Substance: CYTARABINE
     Indication: ACUTE MYELOID LEUKAEMIA
     Dosage: 2000 MG, 1X/DAY (DRUG DOSAGE INTERVAL: 10 DAYS)
     Route: 042
     Dates: start: 20200722, end: 20200801
  3. AMIKACINE [AMIKACIN SULFATE] [Concomitant]
     Active Substance: AMIKACIN SULFATE
     Indication: FEBRILE NEUTROPENIA
     Dosage: 500 MG, 1X/DAY
     Dates: start: 20200809, end: 20200812
  4. MITOXANTRONE HCL [Suspect]
     Active Substance: MITOXANTRONE HYDROCHLORIDE
     Indication: ACUTE MYELOID LEUKAEMIA
     Dosage: 160 MG/M2, 1X/DAY (DRUG DOSAGE INTERVAL: 10 DAYS)
     Route: 042
     Dates: start: 20200722, end: 20200725
  5. CIPROFLOXACINE [CIPROFLOXACIN HYDROCHLORIDE] [Concomitant]
     Active Substance: CIPROFLOXACIN HYDROCHLORIDE
     Indication: CELLULITIS
     Dosage: 5.2 MG/KG, 1X/DAY
     Dates: start: 20200817
  6. CANCIDAS [Concomitant]
     Active Substance: CASPOFUNGIN ACETATE
     Indication: FEBRILE NEUTROPENIA
     Dosage: 72.0 MG/M2
     Dates: start: 20200804, end: 20200807
  7. AMBISOME [Concomitant]
     Active Substance: AMPHOTERICIN B
     Indication: FEBRILE NEUTROPENIA
     Dosage: 50 MG, 1X/DAY
     Dates: start: 20200807
  8. GEMTUZUMAB OZOGAMICIN [Suspect]
     Active Substance: GEMTUZUMAB OZOGAMICIN
     Indication: ACUTE MYELOID LEUKAEMIA
     Dosage: 8.7 MG (DRUG DOSAGE INTERVAL: 10 DAYS)
     Route: 042
     Dates: start: 20200724, end: 20200730

REACTIONS (1)
  - Coma [Recovered/Resolved]

NARRATIVE: CASE EVENT DATE: 20200823
